FAERS Safety Report 11402259 (Version 1)
Quarter: 2015Q3

REPORT INFORMATION
  Report Type: Spontaneous
  Country: US (occurrence: US)
  Receive Date: 20150821
  Receipt Date: 20150821
  Transmission Date: 20151125
  Serious: Yes (Death, Hospitalization)
  Sender: FDA-Public Use
  Company Number: US-ACCORD-033076

PATIENT
  Age: 63 Year
  Sex: Female
  Weight: 82.1 kg

DRUGS (19)
  1. DOCETAXEL ACCORD [Suspect]
     Active Substance: DOCETAXEL
     Indication: BREAST CANCER FEMALE
     Dosage: 80MG/4ML (MULTI USE VIAL)
     Route: 042
     Dates: start: 20150804, end: 20150804
  2. ALOXI [Concomitant]
     Active Substance: PALONOSETRON HYDROCHLORIDE
     Route: 042
     Dates: start: 20150804
  3. CARBOPLATIN. [Concomitant]
     Active Substance: CARBOPLATIN
     Route: 042
     Dates: start: 20150804
  4. HERCEPTIN [Concomitant]
     Active Substance: TRASTUZUMAB
     Route: 042
     Dates: start: 20150804
  5. NEULASTA [Concomitant]
     Active Substance: PEGFILGRASTIM
     Dosage: 6 MG SQ ON BODY INJECTOR
     Dates: start: 20150804
  6. CIMICIFUGA RACEMOSA [Concomitant]
     Route: 048
  7. ACETYLSALICYLIC ACID [Concomitant]
     Active Substance: ASPIRIN
     Route: 048
  8. COLECALCIFEROL [Concomitant]
     Active Substance: CHOLECALCIFEROL
     Dosage: 2000 UNIT
     Route: 048
  9. DIPHENHYDRAMINE. [Concomitant]
     Active Substance: DIPHENHYDRAMINE
     Route: 042
     Dates: start: 20150804
  10. VITAMINS NOS [Concomitant]
     Active Substance: VITAMINS
     Route: 048
  11. DECADRON [Concomitant]
     Active Substance: DEXAMETHASONE
     Route: 042
     Dates: start: 20150804
  12. COMPAZINE [Concomitant]
     Active Substance: PROCHLORPERAZINE MALEATE
     Indication: NAUSEA
     Dosage: 10 MG 1 PO Q6H PRN NAUSEA
  13. ZOFRAN [Concomitant]
     Active Substance: ONDANSETRON HYDROCHLORIDE
     Indication: NAUSEA
     Dosage: 8 MG 1 PO Q8H PRN NAUSEA
     Route: 048
  14. LEVOTHYROXINE. [Concomitant]
     Active Substance: LEVOTHYROXINE
     Route: 048
  15. CHONDROITIN SULFATE/GLUCOSAMINE [Concomitant]
     Dosage: GLUCOSAMINE500 MG/CHONDROITIN 400 MG
     Route: 048
  16. CALCIUM/COLECALCIFEROL [Concomitant]
     Dosage: 600MG/200UNIT
     Route: 048
  17. OMEGA-3 FATTY ACIDS [Concomitant]
     Active Substance: OMEGA-3 FATTY ACIDS
     Route: 048
  18. DEXAMETHASONE. [Concomitant]
     Active Substance: DEXAMETHASONE
     Dosage: 4 MG 2PO BID DAY BEFORE, DAY OF, AND DAY AFTER CHEMO WITH FOOD
     Route: 048
  19. EMEND [Concomitant]
     Active Substance: APREPITANT
     Route: 042
     Dates: start: 20150804

REACTIONS (4)
  - Constipation [Unknown]
  - Intestinal ischaemia [Fatal]
  - Vomiting [Unknown]
  - Diarrhoea [Unknown]

NARRATIVE: CASE EVENT DATE: 20150808
